FAERS Safety Report 14585920 (Version 2)
Quarter: 2018Q2

REPORT INFORMATION
  Report Type: Report from Study
  Country: JP (occurrence: JP)
  Receive Date: 20180301
  Receipt Date: 20180529
  Transmission Date: 20180711
  Serious: Yes (Other)
  Sender: FDA-Public Use
  Company Number: JP-ALK-ABELLO A/S-2018AA000605

PATIENT

DRUGS (5)
  1. ALLERGEN EXTRACTS [Concomitant]
     Indication: SEASONAL ALLERGY
     Dosage: 2000 JAU/ML
     Route: 058
     Dates: start: 20170613
  2. POLARAMINE                         /00072502/ [Concomitant]
     Route: 048
  3. OLOPATADINE HYDROCHLORIDE. [Concomitant]
     Active Substance: OLOPATADINE HYDROCHLORIDE
     Route: 048
  4. TAE BULK 510 [Suspect]
     Active Substance: DERMATOPHAGOIDES FARINAE\DERMATOPHAGOIDES PTERONYSSINUS
     Indication: RHINITIS ALLERGIC
     Dosage: 100 JAU
     Route: 058
     Dates: start: 20160920, end: 20160927
  5. TAE BULK 510 [Suspect]
     Active Substance: DERMATOPHAGOIDES FARINAE\DERMATOPHAGOIDES PTERONYSSINUS
     Indication: ASTHMA
     Dosage: 10 JAU
     Route: 058
     Dates: start: 20161003

REACTIONS (1)
  - Anaphylactic reaction [Recovered/Resolved]

NARRATIVE: CASE EVENT DATE: 20160927
